FAERS Safety Report 12717713 (Version 1)
Quarter: 2016Q3

REPORT INFORMATION
  Report Type: Spontaneous
  Country: US (occurrence: US)
  Receive Date: 20160906
  Receipt Date: 20160906
  Transmission Date: 20161109
  Serious: No
  Sender: FDA-Public Use
  Company Number: US-AMNEAL PHARMACEUTICALS-2016AMN00187

PATIENT
  Age: 54 Year
  Sex: Female
  Weight: 54.42 kg

DRUGS (1)
  1. NORETHINDRONE ACETATE. [Suspect]
     Active Substance: NORETHINDRONE ACETATE
     Dosage: 5 MG, 1X/DAY (15MG TO 5MG DAILY FOR 8 WEEKS)
     Route: 048
     Dates: start: 20160201

REACTIONS (1)
  - Dyspnoea [Unknown]

NARRATIVE: CASE EVENT DATE: 20160207
